FAERS Safety Report 8544403-2 (Version None)
Quarter: 2012Q3

REPORT INFORMATION
  Report Type: 
  Country: None (occurrence: None)
  Receive Date: 20120717
  Receipt Date: 20120702
  Transmission Date: 20120928
  Serious: Yes (Other)
  Sender: FDA-Public Use
  Company Number: 1343476

PATIENT
  Age: 37 Year
  Sex: Female

DRUGS (6)
  1. ADRIAMYCIN PFS [Concomitant]
  2. BENADRYL [Concomitant]
  3. CYTOXAN [Concomitant]
  4. AVASTIN [Concomitant]
  5. PACLITAXEL [Suspect]
     Indication: BREAST CANCER STAGE IV
     Dosage: WEEKLY, INTRAVENOUS
     Route: 042
  6. DEXAMETHASONE [Concomitant]

REACTIONS (5)
  - RESPIRATORY DISTRESS [None]
  - BRONCHOSPASM [None]
  - NON-CARDIOGENIC PULMONARY OEDEMA [None]
  - CONTRAST MEDIA REACTION [None]
  - PROCEDURAL COMPLICATION [None]
